FAERS Safety Report 9051855 (Version 1)
Quarter: 2013Q1

REPORT INFORMATION
  Report Type: Spontaneous
  Country: US (occurrence: None)
  Receive Date: 20130130
  Receipt Date: 20130130
  Transmission Date: 20140127
  Serious: Yes (Hospitalization)
  Sender: FDA-Public Use
  Company Number: None

PATIENT
  Age: 67 Year
  Sex: Female
  Weight: 79.54 kg

DRUGS (6)
  1. LORTAB [Suspect]
     Indication: BACK PAIN
     Route: 048
  2. TIZANIDINE [Suspect]
     Indication: BACK PAIN
  3. BENADRYL [Suspect]
  4. DIAZEPAM [Suspect]
  5. PROMETHAZINE [Suspect]
  6. CYCLOBENZAPRINE [Suspect]

REACTIONS (6)
  - Mental status changes [None]
  - Hypotension [None]
  - Bradycardia [None]
  - Somnolence [None]
  - Sedation [None]
  - Therapeutic response decreased [None]
